FAERS Safety Report 23783714 (Version 1)
Quarter: 2024Q2

REPORT INFORMATION
  Report Type: Report from Study
  Country: A1 (occurrence: US)
  Receive Date: 20240425
  Receipt Date: 20240425
  Transmission Date: 20240716
  Serious: Yes (Death)
  Sender: FDA-Public Use
  Company Number: US-Amphastar Pharmaceuticals, Inc.-2154205

PATIENT
  Sex: Male

DRUGS (3)
  1. BAQSIMI [Suspect]
     Active Substance: GLUCAGON
     Route: 065
  2. BASAGLAR [Suspect]
     Active Substance: INSULIN GLARGINE
  3. HUMULIN N [Suspect]
     Active Substance: INSULIN HUMAN

REACTIONS (1)
  - Death [Fatal]
